FAERS Safety Report 15932827 (Version 2)
Quarter: 2019Q3

REPORT INFORMATION
  Report Type: Spontaneous
  Country: US (occurrence: US)
  Receive Date: 20190207
  Receipt Date: 20190820
  Transmission Date: 20191004
  Serious: No
  Sender: FDA-Public Use
  Company Number: US-MYLANLABS-2019M1006151

PATIENT
  Sex: Female

DRUGS (1)
  1. LEVOTHYROXINE SODIUM TABLETS, USP [Suspect]
     Active Substance: LEVOTHYROXINE SODIUM
     Dosage: 100 MICROGRAM
     Route: 048
     Dates: start: 201809

REACTIONS (6)
  - Tri-iodothyronine decreased [Unknown]
  - Thyroxine decreased [Unknown]
  - Muscle spasms [Unknown]
  - Product physical issue [Unknown]
  - Product odour abnormal [Unknown]
  - Anal incontinence [Unknown]
